FAERS Safety Report 18102751 (Version 1)
Quarter: 2020Q3

REPORT INFORMATION
  Report Type: Report from Study
  Country: None (occurrence: US)
  Receive Date: 20200803
  Receipt Date: 20200803
  Transmission Date: 20201103
  Serious: Yes (Hospitalization, Other)
  Sender: FDA-Public Use
  Company Number: US-ABBVIE-20K-163-3503785-00

PATIENT
  Sex: Female

DRUGS (1)
  1. HUMIRA [Suspect]
     Active Substance: ADALIMUMAB
     Indication: CROHN^S DISEASE
     Route: 058

REACTIONS (7)
  - Nephrolithiasis [Unknown]
  - Back disorder [Unknown]
  - Intervertebral disc protrusion [Unknown]
  - Crying [Unknown]
  - Fatigue [Unknown]
  - Hyperhidrosis [Unknown]
  - Pain [Not Recovered/Not Resolved]
